FAERS Safety Report 12563983 (Version 1)
Quarter: 2016Q3

REPORT INFORMATION
  Report Type: Spontaneous
  Country: US (occurrence: None)
  Receive Date: 20160715
  Receipt Date: 20160715
  Transmission Date: 20161109
  Serious: Yes (Death, Hospitalization)
  Sender: FDA-Public Use
  Company Number: None

PATIENT
  Age: 12 Year
  Sex: Male
  Weight: 68.04 kg

DRUGS (2)
  1. ALBUTEROL (WARRICK) [Suspect]
     Active Substance: ALBUTEROL
     Indication: ASTHMA
     Dates: start: 199609
  2. AZMACORT [Suspect]
     Active Substance: TRIAMCINOLONE ACETONIDE
     Indication: ASTHMA

REACTIONS (2)
  - Drug hypersensitivity [None]
  - Multiple organ dysfunction syndrome [None]

NARRATIVE: CASE EVENT DATE: 19970401
